FAERS Safety Report 9525134 (Version 1)
Quarter: 2013Q1

REPORT INFORMATION
  Report Type: Spontaneous
  Country: US (occurrence: None)
  Receive Date: 20130314
  Receipt Date: 20130314
  Transmission Date: 20140127
  Serious: No
  Sender: FDA-Public Use
  Company Number: 1212USA006378

PATIENT
  Age: 46 Year
  Sex: Female
  Weight: 30.4 kg

DRUGS (12)
  1. VICTRELIS [Suspect]
     Indication: HEPATITIS C
     Dosage: 800 MG, TID, ORAL
     Route: 048
     Dates: end: 201212
  2. RIBAVIRIN [Suspect]
     Indication: HEPATITIS C
     Dosage: UNK
     Dates: end: 201212
  3. PEGASYS [Suspect]
     Indication: HEPATITIS C
     Route: 058
     Dates: end: 201212
  4. OXYCONTIN (OXYCODONE HYDROCHLORIDE) , 20 MG [Concomitant]
  5. CALCIUM (UNSPECIFIED) (CALCIUM (UNSPECIFIED)) [Concomitant]
  6. PRAVASTATIN SODIUM (PRAVASTATIN SODIUM) , 40 MG [Concomitant]
  7. LEVOTHYROXINE SODIUM (LEVOTHYROXINE SODIUM) , 100 MICROGRAM [Concomitant]
  8. GABAPENTIN (GABAPENTIN)  , 600 MG [Concomitant]
  9. EXCEDRIN (ACETAMINOPHEN (+) CAFFEINE) (ACETAMINOPHEN, CAFFEINE) [Concomitant]
  10. MOTRIN IB (IBUPROFEN) , 200 MG [Concomitant]
  11. STRETTERA (ATOMOXETINE HYDROCHLROIDE) , 80 MG [Concomitant]
  12. OXYCODONE (OXYCODONE) , 20 MG [Concomitant]

REACTIONS (7)
  - Panic attack [None]
  - Anxiety [None]
  - Irritability [None]
  - Depression [None]
  - Crying [None]
  - Micturition urgency [None]
  - Suicidal ideation [None]
